FAERS Safety Report 6765235-1 (Version None)
Quarter: 2010Q2

REPORT INFORMATION
  Report Type: 
  Country: None (occurrence: None)
  Receive Date: 20100611
  Receipt Date: 20100527
  Transmission Date: 20101027
  Serious: Yes (Other)
  Sender: FDA-Public Use
  Company Number: US-ASTRAZENECA-2006UW25083

PATIENT
  Age: 43 Year
  Sex: Female
  Weight: 104.3 kg

DRUGS (4)
  1. SEROQUEL [Suspect]
     Route: 048
     Dates: start: 20020701
  2. GEODON [Concomitant]
  3. THORAZINE [Concomitant]
  4. ZYPREXA [Concomitant]
     Dates: start: 20020701

REACTIONS (4)
  - FEELING ABNORMAL [None]
  - MULTIPLE INJURIES [None]
  - TYPE 2 DIABETES MELLITUS [None]
  - WEIGHT INCREASED [None]
